FAERS Safety Report 26155717 (Version 1)
Quarter: 2025Q4

REPORT INFORMATION
  Report Type: Spontaneous
  Country: EU (occurrence: EU)
  Receive Date: 20251215
  Receipt Date: 20251215
  Transmission Date: 20260118
  Serious: No
  Sender: ALKEM
  Company Number: EU-ALKEM LABORATORIES LIMITED-NL-ALKEM-2025-04162

PATIENT
  Age: 22 Year
  Sex: Male

DRUGS (1)
  1. TACROLIMUS [Suspect]
     Active Substance: TACROLIMUS
     Indication: Aicardi-Goutieres syndrome
     Dosage: UNK
     Route: 065

REACTIONS (2)
  - Treatment noncompliance [Unknown]
  - Drug ineffective [Unknown]
